FAERS Safety Report 13759088 (Version 1)
Quarter: 2017Q3

REPORT INFORMATION
  Report Type: Spontaneous
  Country: US (occurrence: US)
  Receive Date: 20170717
  Receipt Date: 20170717
  Transmission Date: 20171127
  Serious: Yes (Disabling, Other)
  Sender: FDA-Public Use
  Company Number: US-009507513-1707USA001274

PATIENT
  Sex: Female

DRUGS (2)
  1. ALENDRONATE SODIUM. [Suspect]
     Active Substance: ALENDRONATE SODIUM
     Indication: OSTEOPOROSIS PROPHYLAXIS
     Dosage: UNK
     Route: 048
     Dates: start: 2008, end: 201501
  2. FOSAMAX [Suspect]
     Active Substance: ALENDRONATE SODIUM
     Indication: OSTEOPOROSIS PROPHYLAXIS
     Dosage: UNK
     Route: 048
     Dates: start: 2008, end: 201501

REACTIONS (7)
  - Rotator cuff syndrome [Unknown]
  - Osteonecrosis [Unknown]
  - Osteonecrosis of jaw [Unknown]
  - Multiple fractures [Unknown]
  - Upper limb fracture [Unknown]
  - Low turnover osteopathy [Unknown]
  - Herpes zoster [Unknown]

NARRATIVE: CASE EVENT DATE: 201411
